FAERS Safety Report 22235857 (Version 1)
Quarter: 2023Q2

REPORT INFORMATION
  Report Type: Spontaneous
  Country: US (occurrence: None)
  Receive Date: 20230419
  Receipt Date: 20230419
  Transmission Date: 20230722
  Serious: Yes (Death)
  Sender: FDA-Public Use
  Company Number: None

PATIENT
  Age: 69 Year
  Sex: Male
  Weight: 76.2 kg

DRUGS (25)
  1. ERLEADA [Suspect]
     Active Substance: APALUTAMIDE
     Indication: Prostate cancer
     Dosage: FREQUENCY : DAILY;?
     Route: 048
  2. AMITRIPTYLINE [Concomitant]
  3. CARBAMAZEPINE [Concomitant]
     Active Substance: CARBAMAZEPINE
  4. CARBEDILOL [Concomitant]
  5. CLONAZEPAM [Concomitant]
     Active Substance: CLONAZEPAM
  6. ENTRESTO [Concomitant]
     Active Substance: SACUBITRIL\VALSARTAN
  7. FENOFIBRATE [Concomitant]
     Active Substance: FENOFIBRATE
  8. FLUTICASONE-SALMETEROL [Concomitant]
  9. HUMALOG [Concomitant]
     Active Substance: INSULIN LISPRO
  10. HYDRALAZINE [Concomitant]
  11. FOLIC ACID [Concomitant]
  12. LANTUS [Concomitant]
  13. LOSARTAN [Concomitant]
     Active Substance: LOSARTAN
  14. MEMANTINE [Concomitant]
     Active Substance: MEMANTINE
  15. METOPROLOL [Concomitant]
     Active Substance: METOPROLOL
  16. NOVOLOG [Concomitant]
     Active Substance: INSULIN ASPART
  17. ONDANSETRON [Concomitant]
     Active Substance: ONDANSETRON
  18. OXYCODONE [Concomitant]
     Active Substance: OXYCODONE
  19. OZEMPIC [Concomitant]
     Active Substance: SEMAGLUTIDE
  20. ROSUVASTATIN [Concomitant]
  21. SERTRALINE [Concomitant]
  22. TAMSULOSIN [Concomitant]
     Active Substance: TAMSULOSIN
  23. VASCEPA [Concomitant]
  24. XGEVA [Concomitant]
     Active Substance: DENOSUMAB
  25. XTANDI [Concomitant]
     Active Substance: ENZALUTAMIDE

REACTIONS (1)
  - Death [None]

NARRATIVE: CASE EVENT DATE: 20230402
